FAERS Safety Report 18845999 (Version 1)
Quarter: 2021Q1

REPORT INFORMATION
  Report Type: Spontaneous
  Country: US (occurrence: US)
  Receive Date: 20210204
  Receipt Date: 20210204
  Transmission Date: 20210419
  Serious: No
  Sender: FDA-Public Use
  Company Number: US-PFIZER INC-2021101523

PATIENT
  Age: 55 Year
  Sex: Female
  Weight: 99.34 kg

DRUGS (2)
  1. EFFEXOR XR [Suspect]
     Active Substance: VENLAFAXINE HYDROCHLORIDE
     Indication: MAJOR DEPRESSION
     Dosage: 150 MG
  2. EFFEXOR XR [Suspect]
     Active Substance: VENLAFAXINE HYDROCHLORIDE
     Dosage: 75 MG, DAILY (1 CAPSULE BY MOUTH DAILY)
     Route: 048

REACTIONS (1)
  - Irritability [Unknown]

NARRATIVE: CASE EVENT DATE: 2020
